FAERS Safety Report 10211984 (Version 1)
Quarter: 2014Q2

REPORT INFORMATION
  Report Type: Spontaneous
  Country: US (occurrence: US)
  Receive Date: 20140602
  Receipt Date: 20140602
  Transmission Date: 20141212
  Serious: No
  Sender: FDA-Public Use
  Company Number: US-AMGEN-USASP2014034808

PATIENT
  Age: 29 Year
  Sex: Female

DRUGS (1)
  1. ENBREL [Suspect]
     Indication: RHEUMATOID ARTHRITIS
     Dosage: UNK MG, Q2WK
     Route: 065
     Dates: start: 20140201, end: 201404

REACTIONS (2)
  - Injection site rash [Recovered/Resolved]
  - Injection site hypersensitivity [Recovered/Resolved]
